FAERS Safety Report 5584015-6 (Version None)
Quarter: 2008Q1

REPORT INFORMATION
  Report Type: 
  Country: None (occurrence: None)
  Receive Date: 20080104
  Receipt Date: 20080104
  Transmission Date: 20080703
  Serious: No
  Sender: FDA-Public Use
  Company Number: None

PATIENT
  Age: 47 Year
  Sex: Female
  Weight: 86.1834 kg

DRUGS (1)
  1. OXYCODONE AND ACETAMINOPHEN [Suspect]
     Indication: PAIN
     Dosage: 2 TABS EVERY 6 HOUR BY MOUTH
     Route: 048

REACTIONS (3)
  - HYPOAESTHESIA FACIAL [None]
  - PRURITUS [None]
  - VOMITING [None]
